FAERS Safety Report 6975426-2 (Version None)
Quarter: 2010Q3

REPORT INFORMATION
  Report Type: 
  Country: None (occurrence: None)
  Receive Date: 20100910
  Receipt Date: 20090318
  Transmission Date: 20110219
  Serious: No
  Sender: FDA-Public Use
  Company Number: US-WYE-H08642109

PATIENT
  Sex: Female
  Weight: 72.64 kg

DRUGS (6)
  1. PRISTIQ [Suspect]
     Indication: DEPRESSION
     Route: 048
     Dates: start: 20090301
  2. OMEPRAZOLE [Concomitant]
  3. AROMASIN [Concomitant]
  4. ATENOLOL [Concomitant]
  5. NORVASC [Concomitant]
  6. CRESTOR [Concomitant]

REACTIONS (1)
  - DIARRHOEA [None]
